FAERS Safety Report 15133653 (Version 1)
Quarter: 2018Q3

REPORT INFORMATION
  Report Type: Spontaneous
  Country: US (occurrence: US)
  Receive Date: 20180615
  Receipt Date: 20180615
  Transmission Date: 20181010
  Serious: No
  Sender: FDA-Public Use
  Company Number: None

PATIENT
  Age: 60 Year
  Sex: Male

DRUGS (1)
  1. TEMOZOLOMIDE CAP 180MG [Suspect]
     Active Substance: TEMOZOLOMIDE
     Route: 048
     Dates: start: 20170530, end: 20180615

REACTIONS (4)
  - Abdominal distension [None]
  - Fatigue [None]
  - Weight decreased [None]
  - Nausea [None]

NARRATIVE: CASE EVENT DATE: 20180521
